FAERS Safety Report 21946566 (Version 1)
Quarter: 2023Q1

REPORT INFORMATION
  Report Type: Report from Study
  Country: US (occurrence: US)
  Receive Date: 20230202
  Receipt Date: 20230202
  Transmission Date: 20230418
  Serious: No
  Sender: FDA-Public Use
  Company Number: US-INCYTE CORPORATION-2022IN006324

PATIENT

DRUGS (5)
  1. RUXOLITINIB [Suspect]
     Active Substance: RUXOLITINIB
     Indication: Alopecia
     Dosage: 1.5 PERCENT, BID, 2X10MG
     Route: 061
  2. KENALOG [Concomitant]
     Active Substance: TRIAMCINOLONE ACETONIDE
     Indication: Product used for unknown indication
     Dosage: INTRALESIONAL KENALOG
     Route: 026
     Dates: start: 20220309
  3. KENALOG [Concomitant]
     Active Substance: TRIAMCINOLONE ACETONIDE
     Dosage: INTRALESIONAL KENALOG
     Route: 026
     Dates: start: 20220430
  4. KENALOG [Concomitant]
     Active Substance: TRIAMCINOLONE ACETONIDE
     Dosage: INTRALESIONAL KENALOG
     Route: 026
     Dates: start: 20220602
  5. KENALOG [Concomitant]
     Active Substance: TRIAMCINOLONE ACETONIDE
     Dosage: INTRALESIONAL KENALOG
     Route: 026
     Dates: start: 20220715

REACTIONS (2)
  - Product physical issue [Unknown]
  - Off label use [Unknown]
